FAERS Safety Report 13657164 (Version 1)
Quarter: 2017Q2

REPORT INFORMATION
  Report Type: Spontaneous
  Country: RU (occurrence: RU)
  Receive Date: 20170615
  Receipt Date: 20170615
  Transmission Date: 20170830
  Serious: Yes (Life-Threatening, Other)
  Sender: FDA-Public Use
  Company Number: RU-BAXALTA-2017BLT005622

PATIENT
  Age: 1 Year
  Sex: Male
  Weight: 11.7 kg

DRUGS (3)
  1. OCTANINE F [Suspect]
     Active Substance: COAGULATION FACTOR IX HUMAN
     Indication: HAEMORRHAGE
     Dosage: 500 IU, UNK (INFUSION SPEED 5 ML/MIN)
     Route: 065
     Dates: start: 20130726, end: 20130726
  2. IMMUNINE (COAGULATION FACTOR IX HUMAN) [Suspect]
     Active Substance: COAGULATION FACTOR IX HUMAN
     Indication: FACTOR IX DEFICIENCY
     Dosage: 600 IU, UNK (INFUSION SPEED 5 ML/MIN)
     Route: 065
     Dates: start: 20121231, end: 20121231
  3. IMMUNINE (COAGULATION FACTOR IX HUMAN) [Suspect]
     Active Substance: COAGULATION FACTOR IX HUMAN
     Dosage: 600 IU, UNK (INFUSION SPEED 5 ML/MIN)
     Route: 065
     Dates: start: 20130722, end: 20130722

REACTIONS (3)
  - Factor IX inhibition [Unknown]
  - Urticaria [Recovered/Resolved]
  - Hypersensitivity [Recovered/Resolved]

NARRATIVE: CASE EVENT DATE: 20130722
